FAERS Safety Report 4705020-5 (Version None)
Quarter: 2005Q3

REPORT INFORMATION
  Report Type: 
  Country: None (occurrence: None)
  Receive Date: 20050701
  Receipt Date: 20050621
  Transmission Date: 20060218
  Serious: Yes (Hospitalization)
  Sender: FDA-Public Use
  Company Number: JP-JNJFOC-20041004724

PATIENT
  Sex: Female
  Weight: 51 kg

DRUGS (19)
  1. REMICADE [Suspect]
     Route: 042
  2. REMICADE [Suspect]
     Route: 042
  3. REMICADE [Suspect]
     Route: 042
  4. REMICADE [Suspect]
     Route: 042
  5. REMICADE [Suspect]
     Route: 042
  6. REMICADE [Suspect]
     Indication: RHEUMATOID ARTHRITIS
     Route: 042
  7. METHOTREXATE [Suspect]
     Route: 049
  8. METHOTREXATE [Suspect]
     Route: 049
  9. METHOTREXATE [Suspect]
     Route: 049
  10. METHOTREXATE [Suspect]
     Route: 049
  11. METHOTREXATE [Suspect]
     Route: 049
  12. METHOTREXATE [Suspect]
     Indication: RHEUMATOID ARTHRITIS
     Route: 049
  13. PREDONINE [Concomitant]
     Indication: RHEUMATOID ARTHRITIS
     Route: 049
  14. TAKEPRON [Concomitant]
     Route: 049
  15. VOLTAREN [Concomitant]
     Indication: RHEUMATOID ARTHRITIS
     Route: 049
  16. FOLIAMIN [Concomitant]
     Indication: RHEUMATOID ARTHRITIS
     Route: 049
  17. AZULFIDINE [Concomitant]
     Indication: RHEUMATOID ARTHRITIS
     Route: 049
  18. INFREE [Concomitant]
     Indication: RHEUMATOID ARTHRITIS
     Route: 049
  19. ADRENAL HORMONE PREPARATIONS [Concomitant]
     Indication: RHEUMATOID ARTHRITIS

REACTIONS (5)
  - CRYPTOGENIC ORGANIZING PNEUMONIA [None]
  - DRUG INEFFECTIVE [None]
  - PALPITATIONS [None]
  - PNEUMOCYSTIS JIROVECI PNEUMONIA [None]
  - PNEUMONIA [None]
